FAERS Safety Report 23649197 (Version 2)
Quarter: 2024Q1

REPORT INFORMATION
  Report Type: Report from Study
  Country: SA (occurrence: SA)
  Receive Date: 20240319
  Receipt Date: 20240319
  Transmission Date: 20240410
  Serious: Yes (Other)
  Sender: FDA-Public Use
  Company Number: SA-SANDOZ-SDZ2024SA027652

PATIENT
  Age: 52 Year
  Sex: Female

DRUGS (1)
  1. HYRIMOZ [Suspect]
     Active Substance: ADALIMUMAB-ADAZ
     Indication: Psoriasis
     Dosage: 40 MG/ EVERY 14 DAYS
     Route: 058
     Dates: start: 20230225

REACTIONS (4)
  - Psoriasis [Not Recovered/Not Resolved]
  - Chondropathy [Unknown]
  - Inappropriate schedule of product administration [Unknown]
  - Product availability issue [Unknown]

NARRATIVE: CASE EVENT DATE: 20230301
